FAERS Safety Report 21144296 (Version 5)
Quarter: 2022Q4

REPORT INFORMATION
  Report Type: Spontaneous
  Country: JP (occurrence: JP)
  Receive Date: 20220728
  Receipt Date: 20221221
  Transmission Date: 20230113
  Serious: Yes (Other)
  Sender: FDA-Public Use
  Company Number: JP-NEUROCRINE BIOSCIENCES INC.-2022NBI05049

PATIENT

DRUGS (4)
  1. VALBENAZINE [Suspect]
     Active Substance: VALBENAZINE
     Indication: Tardive dyskinesia
     Dosage: 40 MILLIGRAM, QD
     Route: 048
     Dates: start: 20220711, end: 20220714
  2. ETIZOLAM [Suspect]
     Active Substance: ETIZOLAM
     Indication: Insomnia
     Dosage: 1 MILLIGRAM,QD
     Route: 048
     Dates: start: 20160912
  3. REFLEX [Concomitant]
     Active Substance: MIRTAZAPINE
     Indication: Affective disorder
     Dosage: UNKNOWN
     Route: 065
     Dates: start: 20210807
  4. LEVETIRACETAM [Concomitant]
     Active Substance: LEVETIRACETAM
     Indication: Epilepsy
     Dosage: UNKNOWN
     Route: 065
     Dates: start: 20180718

REACTIONS (1)
  - Tardive dyskinesia [Recovered/Resolved]

NARRATIVE: CASE EVENT DATE: 20220714
